FAERS Safety Report 7416287-7 (Version None)
Quarter: 2011Q2

REPORT INFORMATION
  Report Type: 
  Country: None (occurrence: None)
  Receive Date: 20110414
  Receipt Date: 20110407
  Transmission Date: 20111010
  Serious: Yes (Death, Life-Threatening, Hospitalization)
  Sender: FDA-Public Use
  Company Number: FR-ELI_LILLY_AND_COMPANY-FR201006005248

PATIENT
  Sex: Male
  Weight: 61 kg

DRUGS (7)
  1. NEUPOGEN [Concomitant]
  2. ACETAMINOPHEN AND TRAMADOL HCL [Concomitant]
  3. CISPLATIN [Concomitant]
     Indication: PLEURAL MESOTHELIOMA MALIGNANT
     Dosage: 75 MG/M2, UNKNOWN
     Route: 042
     Dates: start: 20100503, end: 20100602
  4. FOLIC ACID [Concomitant]
     Indication: VITAMIN SUPPLEMENTATION
  5. CORTICOSTEROIDS [Concomitant]
     Indication: PROPHYLAXIS
  6. ALIMTA [Suspect]
     Indication: PLEURAL MESOTHELIOMA MALIGNANT
     Dosage: 500 MG/M2, OTHER (EVERY THREE WEEKS)
     Route: 042
     Dates: start: 20100503, end: 20100602
  7. VITAMIN B-12 [Concomitant]
     Indication: VITAMIN SUPPLEMENTATION

REACTIONS (4)
  - FEBRILE NEUTROPENIA [None]
  - THROMBOCYTOPENIA [None]
  - ANAEMIA [None]
  - HEPATIC ENCEPHALOPATHY [None]
